FAERS Safety Report 6752511-1 (Version None)
Quarter: 2010Q2

REPORT INFORMATION
  Report Type: 
  Country: None (occurrence: None)
  Receive Date: 20100601
  Receipt Date: 20100601
  Transmission Date: 20101027
  Serious: No
  Sender: FDA-Public Use
  Company Number: None

PATIENT
  Age: 23 Year
  Sex: Female
  Weight: 63.05 kg

DRUGS (1)
  1. DOXYCYCLINE [Suspect]
     Indication: SKIN INFECTION
     Dosage: BID PO
     Route: 048
     Dates: start: 20100517, end: 20100526

REACTIONS (6)
  - DECREASED APPETITE [None]
  - DEPRESSION [None]
  - FATIGUE [None]
  - HOT FLUSH [None]
  - NAUSEA [None]
  - WEIGHT DECREASED [None]
